FAERS Safety Report 11094576 (Version 1)
Quarter: 2015Q2

REPORT INFORMATION
  Report Type: Spontaneous
  Country: US (occurrence: US)
  Receive Date: 20150506
  Receipt Date: 20150506
  Transmission Date: 20150821
  Serious: Yes (Death, Hospitalization)
  Sender: FDA-Public Use
  Company Number: US-CELGENE-USA-2015050386

PATIENT
  Age: 84 Year
  Sex: Female

DRUGS (2)
  1. VIDAZA [Suspect]
     Active Substance: AZACITIDINE
     Indication: PRODUCT USED FOR UNKNOWN INDICATION
     Route: 065
  2. OSELTAMIVIR [Concomitant]
     Active Substance: OSELTAMIVIR
     Indication: INFLUENZA
     Route: 048

REACTIONS (2)
  - Influenza [Unknown]
  - Stress cardiomyopathy [Fatal]
